FAERS Safety Report 9167689 (Version 3)
Quarter: 2013Q2

REPORT INFORMATION
  Report Type: Spontaneous
  Country: BR (occurrence: BR)
  Receive Date: 20130318
  Receipt Date: 20130520
  Transmission Date: 20140414
  Serious: Yes (Disabling, Other)
  Sender: FDA-Public Use
  Company Number: PHHY2013BR025333

PATIENT
  Sex: Male
  Weight: 80 kg

DRUGS (2)
  1. EXELON PATCH [Suspect]
     Dosage: UNK UKN, UNK
     Route: 062
  2. EXELON PATCH [Suspect]
     Dosage: 9.6 MG, UNK
     Route: 062

REACTIONS (6)
  - Deafness [Unknown]
  - Fear [Unknown]
  - Application site swelling [Unknown]
  - Application site pain [Unknown]
  - Application site pruritus [Unknown]
  - Application site rash [Unknown]
